FAERS Safety Report 14558564 (Version 2)
Quarter: 2018Q1

REPORT INFORMATION
  Report Type: Report from Study
  Country: GB (occurrence: GB)
  Receive Date: 20180221
  Receipt Date: 20180226
  Transmission Date: 20180509
  Serious: Yes (Other)
  Sender: FDA-Public Use
  Company Number: GB-SEATTLE GENETICS-2018SGN00324

PATIENT
  Age: 73 Year
  Sex: Male

DRUGS (6)
  1. BRENTUXIMAB VEDOTIN-MPI [Suspect]
     Active Substance: BRENTUXIMAB VEDOTIN
     Dosage: 150 MG, UNK
     Route: 042
  2. ACITRETIN. [Concomitant]
     Active Substance: ACITRETIN
     Dosage: UNK
     Route: 065
  3. BRENTUXIMAB VEDOTIN-MPI [Suspect]
     Active Substance: BRENTUXIMAB VEDOTIN
     Dosage: 100 MG, UNK
     Route: 042
     Dates: start: 20170329, end: 20170712
  4. BRENTUXIMAB VEDOTIN-MPI [Suspect]
     Active Substance: BRENTUXIMAB VEDOTIN
     Indication: MYCOSIS FUNGOIDES
     Dosage: 1.8 MG/KG, 3/WEEK
     Route: 065
  5. ALLOPURINOL. [Concomitant]
     Active Substance: ALLOPURINOL
     Dosage: UNK
  6. BRENTUXIMAB VEDOTIN-MPI [Suspect]
     Active Substance: BRENTUXIMAB VEDOTIN
     Dosage: 150 MG, UNK
     Route: 042
     Dates: start: 20170823

REACTIONS (4)
  - Off label use [Unknown]
  - Skin infection [Recovering/Resolving]
  - Mycosis fungoides recurrent [Unknown]
  - Peripheral sensory neuropathy [Not Recovered/Not Resolved]

NARRATIVE: CASE EVENT DATE: 20170329
